FAERS Safety Report 20040717 (Version 1)
Quarter: 2021Q4

REPORT INFORMATION
  Report Type: Spontaneous
  Country: US (occurrence: None)
  Receive Date: 20211108
  Receipt Date: 20211108
  Transmission Date: 20220303
  Serious: Yes (Hospitalization)
  Sender: FDA-Public Use
  Company Number: None

PATIENT
  Age: 76 Year
  Sex: Female
  Weight: 63 kg

DRUGS (3)
  1. CASIRIVIMAB [Suspect]
     Active Substance: CASIRIVIMAB
     Dosage: FREQUENCY : DAILY;?
     Route: 040
     Dates: start: 20211101, end: 20211102
  2. IMDEVIMAB [Suspect]
     Active Substance: IMDEVIMAB
     Indication: COVID-19
     Dosage: FREQUENCY : DAILY;?
     Route: 040
     Dates: start: 20211101, end: 20211102
  3. SODIUM CHLORIDE [Concomitant]
     Active Substance: SODIUM CHLORIDE
     Dates: start: 20211101, end: 20211102

REACTIONS (5)
  - Dyspnoea [None]
  - Asthenia [None]
  - Chest discomfort [None]
  - Fibrin D dimer increased [None]
  - Platelet count decreased [None]

NARRATIVE: CASE EVENT DATE: 20211104
